FAERS Safety Report 12843529 (Version 2)
Quarter: 2016Q4

REPORT INFORMATION
  Report Type: Spontaneous
  Country: IT (occurrence: IT)
  Receive Date: 20161013
  Receipt Date: 20161020
  Transmission Date: 20170207
  Serious: Yes (Death, Hospitalization)
  Sender: FDA-Public Use
  Company Number: IT-JNJFOC-20161005811

PATIENT
  Age: 60 Year
  Sex: Male
  Weight: 70 kg

DRUGS (2)
  1. CARDIOASPIRIN [Concomitant]
     Active Substance: ASPIRIN
     Indication: TRANSIENT ISCHAEMIC ATTACK
     Route: 065
  2. ZYTIGA [Suspect]
     Active Substance: ABIRATERONE ACETATE
     Indication: PROSTATE CANCER METASTATIC
     Route: 048
     Dates: start: 20160705, end: 20160804

REACTIONS (5)
  - Pericardial effusion [Unknown]
  - Rash pruritic [Recovered/Resolved]
  - Pleural effusion [Unknown]
  - Cardiac failure [Fatal]
  - Congestive cardiomyopathy [Unknown]

NARRATIVE: CASE EVENT DATE: 20160804
